FAERS Safety Report 8423342-1 (Version None)
Quarter: 2012Q2

REPORT INFORMATION
  Report Type: 
  Country: None (occurrence: None)
  Receive Date: 20120608
  Receipt Date: 20120604
  Transmission Date: 20120825
  Serious: Yes (Hospitalization, Other)
  Sender: FDA-Public Use
  Company Number: US-PFIZER INC-2012134195

PATIENT
  Sex: Female
  Weight: 90.703 kg

DRUGS (6)
  1. ACCUPRIL [Suspect]
     Indication: HYPERTENSION
     Dosage: 5 MG, DAILY
     Route: 048
     Dates: start: 20111201, end: 20120501
  2. LISINOPRIL AND HYDROCHLOROTHIAZIDE [Suspect]
     Dosage: LISINOPRIL/ HYDROCHLOROTHIAZIDE 20/25 MG, DAILY
     Dates: start: 20111201
  3. CIPROFLOXACIN [Suspect]
     Indication: URINARY TRACT INFECTION
     Dosage: 500 MG, EVERY TWELVE HOURS
     Route: 048
     Dates: start: 20111201, end: 20111201
  4. OMEPRAZOLE [Suspect]
     Indication: GASTROOESOPHAGEAL REFLUX DISEASE
     Dosage: 20 MG, AS NEEDED
  5. LISINOPRIL AND HYDROCHLOROTHIAZIDE [Suspect]
     Indication: HYPERTENSION
     Dosage: LISINOPRIL/ HYDROCHLOROTHIAZIDE 10/12.5 MG, DAILY
     Dates: start: 20111201
  6. LISINOPRIL AND HYDROCHLOROTHIAZIDE [Suspect]
     Dosage: LISINOPRIL/ HYDROCHLOROTHIAZIDE 10/12.5 MG, DAILY
     Dates: start: 20111201, end: 20111201

REACTIONS (5)
  - DRUG INTOLERANCE [None]
  - HYPOAESTHESIA [None]
  - LUNG NEOPLASM [None]
  - LIMB DISCOMFORT [None]
  - CHEST DISCOMFORT [None]
